FAERS Safety Report 8209053-6 (Version None)
Quarter: 2012Q1

REPORT INFORMATION
  Report Type: 
  Country: None (occurrence: None)
  Receive Date: 20120314
  Receipt Date: 20120228
  Transmission Date: 20120608
  Serious: Yes (Other)
  Sender: FDA-Public Use
  Company Number: JP-SPECTRUM PHARMACEUTICALS, INC.-12-F-JP-00042

PATIENT

DRUGS (5)
  1. FLUOROURACIL [Suspect]
     Dosage: 400 MG/BODY (SUSPENDED AFTER EIGHTH COURSE)
     Route: 040
  2. BEVACIZUMAB [Suspect]
     Indication: RECTAL CANCER RECURRENT
     Dosage: 180 MG/BODY, EVERY 14 DAYS
     Route: 065
  3. OXALIPLATIN [Suspect]
     Indication: RECTAL CANCER RECURRENT
     Dosage: 75 MG/BODY (SUSPENDED IN COURSE 13)
     Route: 065
  4. FLUOROURACIL [Suspect]
     Indication: RECTAL CANCER RECURRENT
     Dosage: 2400 MG/BODY, EVERY 14 DAYS (INFUSION)
     Route: 042
  5. LEUCOVORIN CALCIUM [Suspect]
     Indication: RECTAL CANCER RECURRENT
     Dosage: 225 MG/BODY, EVERY 14 DAYS
     Route: 065

REACTIONS (6)
  - NEUTROPENIA [None]
  - HYPERTENSION [None]
  - NEUROLOGICAL SYMPTOM [None]
  - PROTEINURIA [None]
  - HYPOAESTHESIA [None]
  - LEUKOPENIA [None]
